FAERS Safety Report 19862743 (Version 1)
Quarter: 2021Q3

REPORT INFORMATION
  Report Type: Spontaneous
  Country: US (occurrence: US)
  Receive Date: 20210921
  Receipt Date: 20210921
  Transmission Date: 20211014
  Serious: No
  Sender: FDA-Public Use
  Company Number: US-BRISTOL-MYERS SQUIBB COMPANY-BMS-2021-094380

PATIENT
  Age: 79 Year
  Sex: Male
  Weight: 89.36 kg

DRUGS (15)
  1. MULTI VITAMIN [ASCORBIC ACID;FOLIC ACID;NICOTINIC ACID;PYRIDOXINE HYDR [Concomitant]
     Indication: PRODUCT USED FOR UNKNOWN INDICATION
     Dosage: MULTI VITAMIN  50 PLUS
     Route: 065
  2. ZETIA [Concomitant]
     Active Substance: EZETIMIBE
     Indication: PRODUCT USED FOR UNKNOWN INDICATION
     Dosage: 10 MILLIGRAM, QD
     Route: 065
  3. DIGOXIN. [Concomitant]
     Active Substance: DIGOXIN
     Indication: PRODUCT USED FOR UNKNOWN INDICATION
     Dosage: 0.125 MILLIGRAM, QD
     Route: 065
  4. EVENING PRIMROSE OIL [OENOTHERA BIENNIS] [Concomitant]
     Indication: SKIN DISORDER
     Dosage: 1000 MILLIGRAM, QOD
  5. GLUCOSAMINE CHONDROITIN [CHONDROITIN SULFATE SODIUM;GELATINE HYDROLYSA [Concomitant]
     Indication: MUSCULOSKELETAL PAIN
     Dosage: GLUCOSAMINE CHONDROITIN TRIPLE STRENGTH ONE A DAY FOR MUSCLE AND JOINT PAIN.  (ANKLES)?OLD FOOTBALL
     Route: 065
  6. ELIQUIS [Suspect]
     Active Substance: APIXABAN
     Indication: CEREBROVASCULAR ACCIDENT PROPHYLAXIS
     Dosage: 5 MILLIGRAM, BID
     Route: 048
     Dates: start: 2019
  7. PLAVIX [Suspect]
     Active Substance: CLOPIDOGREL BISULFATE
     Indication: STENT PLACEMENT
     Dosage: 75 MILLIGRAM, QD
     Route: 065
     Dates: end: 2021
  8. METOPROLOL XL [Concomitant]
     Active Substance: METOPROLOL SUCCINATE
     Indication: PRODUCT USED FOR UNKNOWN INDICATION
     Dosage: UNK
     Route: 065
  9. GLUCOSAMINE CHONDROITIN [CHONDROITIN SULFATE SODIUM;GELATINE HYDROLYSA [Concomitant]
     Indication: INJURY
  10. ROSUVASTATIN. [Concomitant]
     Active Substance: ROSUVASTATIN
     Indication: PRODUCT USED FOR UNKNOWN INDICATION
     Dosage: 5 MILLIGRAM, QD
     Route: 065
  11. ALFA LIPOIC ACID [Concomitant]
     Indication: PRODUCT USED FOR UNKNOWN INDICATION
     Dosage: 2 TAB, BID
     Route: 065
  12. EVENING PRIMROSE OIL [OENOTHERA BIENNIS] [Concomitant]
     Indication: METABOLIC DISORDER
  13. DILTIAZEM. [Concomitant]
     Active Substance: DILTIAZEM
     Indication: PRODUCT USED FOR UNKNOWN INDICATION
     Dosage: 240 MILLIGRAM, QD
     Route: 065
  14. VITAMIN C [Concomitant]
     Active Substance: ASCORBIC ACID
     Indication: PRODUCT USED FOR UNKNOWN INDICATION
     Dosage: 500 MILLIGRAM, QD
     Route: 065
  15. L CARNITINE [LEVOCARNITINE FUMARATE] [Concomitant]
     Indication: CARDIAC DISORDER
     Dosage: 500 MILLIGRAM, QD

REACTIONS (7)
  - Pruritus [Unknown]
  - Wound haemorrhage [Unknown]
  - Dysstasia [Unknown]
  - Rash macular [Unknown]
  - Feeling abnormal [Unknown]
  - Scratch [Unknown]
  - Body height decreased [Unknown]
